FAERS Safety Report 6338033-0 (Version None)
Quarter: 2009Q3

REPORT INFORMATION
  Report Type: 
  Country: None (occurrence: None)
  Receive Date: 20090902
  Receipt Date: 20090820
  Transmission Date: 20100115
  Serious: Yes (Other)
  Sender: FDA-Public Use
  Company Number: ES-PFIZER INC-2009238408

PATIENT
  Age: 37 Year

DRUGS (5)
  1. SERTRALINE HCL [Suspect]
  2. CARBAMAZEPINE [Suspect]
  3. LITHIUM [Suspect]
  4. CLOMIPRAMINE [Suspect]
  5. CLORAZEPATE DIPOTASSIUM [Suspect]

REACTIONS (1)
  - ACUTE GENERALISED EXANTHEMATOUS PUSTULOSIS [None]
